FAERS Safety Report 8502328-2 (Version None)
Quarter: 2012Q3

REPORT INFORMATION
  Report Type: 
  Country: None (occurrence: None)
  Receive Date: 20120711
  Receipt Date: 20120702
  Transmission Date: 20120928
  Serious: Yes (Other)
  Sender: FDA-Public Use
  Company Number: BR-JNJFOC-20120702631

PATIENT
  Age: 31 Year
  Sex: Male
  Weight: 75 kg

DRUGS (10)
  1. DIVALPROEX SODIUM [Interacting]
     Route: 065
     Dates: start: 20110101
  2. CLONAZEPAM [Interacting]
     Indication: SCHIZOPHRENIA
     Route: 065
     Dates: start: 20050101
  3. CLONAZEPAM [Interacting]
     Route: 065
  4. INVEGA SUSTENNA [Suspect]
     Indication: SCHIZOPHRENIA
     Route: 030
  5. TOPAMAX [Interacting]
     Indication: SCHIZOPHRENIA
     Route: 048
  6. DIVALPROEX SODIUM [Interacting]
     Indication: SCHIZOPHRENIA
     Route: 065
  7. INVEGA [Interacting]
     Indication: SCHIZOPHRENIA
     Route: 048
     Dates: start: 20120401
  8. CHLORPROMAZINE HCL [Interacting]
     Indication: SCHIZOPHRENIA
     Route: 065
     Dates: start: 20050101, end: 20120701
  9. INVEGA SUSTENNA [Suspect]
     Route: 030
     Dates: start: 20120424
  10. TOPAMAX [Interacting]
     Route: 048
     Dates: start: 20110101

REACTIONS (2)
  - ERECTILE DYSFUNCTION [None]
  - DRUG INTERACTION [None]
